FAERS Safety Report 9538460 (Version 1)
Quarter: 2013Q3

REPORT INFORMATION
  Report Type: Report from Study
  Country: CA (occurrence: CA)
  Receive Date: 20130920
  Receipt Date: 20130920
  Transmission Date: 20140515
  Serious: Yes (Death)
  Sender: FDA-Public Use
  Company Number: CA-JNJFOC-20130910225

PATIENT
  Sex: Female
  Weight: 51 kg

DRUGS (1)
  1. REMICADE [Suspect]
     Indication: CROHN^S DISEASE
     Route: 042
     Dates: start: 20130618, end: 20130801

REACTIONS (5)
  - Myocardial infarction [Fatal]
  - Intestinal infarction [Fatal]
  - Haemorrhage [Fatal]
  - Liver disorder [Fatal]
  - Pneumonia [Fatal]
